FAERS Safety Report 4291947-8 (Version None)
Quarter: 2004Q1

REPORT INFORMATION
  Report Type: 
  Country: None (occurrence: None)
  Receive Date: 20040210
  Receipt Date: 20040210
  Transmission Date: 20041129
  Serious: Yes (Hospitalization)
  Sender: FDA-Public Use
  Company Number: None

PATIENT
  Age: 37 Year
  Sex: Female
  Weight: 67.1324 kg

DRUGS (2)
  1. PAXIL CR [Suspect]
     Indication: MENORRHAGIA
     Dosage: 1 PILL ONCE A DAY ORAL
     Route: 048
     Dates: start: 20020611, end: 20021127
  2. PAXIL CR [Suspect]
     Dosage: 1 PILL EVERY OTHE ORAL
     Route: 048

REACTIONS (10)
  - ABNORMAL BEHAVIOUR [None]
  - ANGER [None]
  - FAMILY STRESS [None]
  - FEELING ABNORMAL [None]
  - INSOMNIA [None]
  - JOB DISSATISFACTION [None]
  - MOOD ALTERED [None]
  - RESTLESSNESS [None]
  - THINKING ABNORMAL [None]
  - VAGINAL DISORDER [None]
